FAERS Safety Report 7998930-7 (Version None)
Quarter: 2011Q4

REPORT INFORMATION
  Report Type: 
  Country: None (occurrence: None)
  Receive Date: 20111221
  Receipt Date: 20111215
  Transmission Date: 20120403
  Serious: Yes (Other)
  Sender: FDA-Public Use
  Company Number: JP-GLAXOSMITHKLINE-B0770237A

PATIENT
  Age: 6 Decade
  Sex: Male

DRUGS (2)
  1. LAMICTAL [Suspect]
     Dosage: 100MG PER DAY
     Route: 048
     Dates: start: 20110901, end: 20110901
  2. LAMICTAL [Suspect]
     Indication: BIPOLAR DISORDER
     Dosage: 50MG PER DAY
     Route: 048
     Dates: start: 20110801, end: 20110901

REACTIONS (3)
  - SKIN EXFOLIATION [None]
  - DRUG ERUPTION [None]
  - SKIN DISORDER [None]
